FAERS Safety Report 5022005-2 (Version None)
Quarter: 2006Q2

REPORT INFORMATION
  Report Type: 
  Country: None (occurrence: None)
  Receive Date: 20060501
  Receipt Date: 20060201
  Transmission Date: 20061013
  Serious: Yes (Disabling, Other)
  Sender: FDA-Public Use
  Company Number: 200610458US

PATIENT
  Age: 34 Year
  Sex: Male
  Weight: 91.81 kg

DRUGS (2)
  1. KETEK [Suspect]
     Indication: PHARYNGITIS
     Dosage: 800 MG QD PO
     Route: 048
     Dates: start: 20060111, end: 20060111
  2. KETEK [Suspect]
     Indication: SINUSITIS
     Dosage: 800 MG QD PO
     Route: 048
     Dates: start: 20060111, end: 20060111

REACTIONS (3)
  - DIPLOPIA [None]
  - VISION BLURRED [None]
  - VISUAL DISTURBANCE [None]
